FAERS Safety Report 4661110-7 (Version None)
Quarter: 2005Q2

REPORT INFORMATION
  Report Type: 
  Country: None (occurrence: None)
  Receive Date: 20050511
  Receipt Date: 20050428
  Transmission Date: 20051028
  Serious: Yes (Hospitalization)
  Sender: FDA-Public Use
  Company Number: 2005029320

PATIENT
  Age: 58 Year

DRUGS (6)
  1. IRINOTECAN HCL [Suspect]
     Indication: COLORECTAL CANCER
     Dosage: (540 MG, CYLIC INTERVAL: EVERY 3 WEEKS), INTRAVENOUS
     Route: 042
     Dates: start: 20041217, end: 20050128
  2. CAPECITABINE             (CAPECITABINE) [Suspect]
     Indication: COLORECTAL CANCER
     Dosage: 4300 MG (2150 MG, BID INTERVAL: EVERY 3 WEEKS), INTRAVENOUS
     Route: 042
     Dates: start: 20041217, end: 20050128
  3. METFORMIN HCL [Concomitant]
  4. ATENOLOL [Concomitant]
  5. ALLOPURINOL [Concomitant]
  6. FERROUS GLUCONATE (FERROUS GLUCONATE) [Concomitant]

REACTIONS (2)
  - ATRIAL FLUTTER [None]
  - PERIPHERAL EMBOLISM [None]
